FAERS Safety Report 8851399 (Version 1)
Quarter: 2012Q4

REPORT INFORMATION
  Report Type: 
  Country: DE (occurrence: DE)
  Receive Date: 20121022
  Receipt Date: 20121022
  Transmission Date: 20130627
  Serious: Yes (Other)
  Sender: FDA-Public Use
  Company Number: DE-ROCHE-1134803

PATIENT
  Age: 73 Year
  Sex: Male
  Weight: 70 kg

DRUGS (3)
  1. MABTHERA [Suspect]
     Indication: LYMPHOMA
     Dosage: Date of Last Dose:07/Aug/2012
     Route: 042
     Dates: start: 20120619
  2. PARACETAMOL [Concomitant]
     Indication: PREMEDICATION
     Route: 048
     Dates: start: 20120619, end: 20120910
  3. DEXAMETHASON [Concomitant]
     Indication: PREMEDICATION
     Route: 042
     Dates: start: 20120619, end: 20120910

REACTIONS (5)
  - Drug ineffective [Unknown]
  - Chills [Recovered/Resolved]
  - Tachycardia [Recovered/Resolved]
  - Nausea [Recovered/Resolved]
  - Blood pressure decreased [Recovered/Resolved]
